FAERS Safety Report 15454505 (Version 1)
Quarter: 2018Q4

REPORT INFORMATION
  Report Type: Spontaneous
  Country: US (occurrence: US)
  Receive Date: 20181002
  Receipt Date: 20181002
  Transmission Date: 20190204
  Serious: No
  Sender: FDA-Public Use
  Company Number: US-PFIZER INC-2018395329

PATIENT
  Sex: Female

DRUGS (14)
  1. SERTRALINE HCL [Suspect]
     Active Substance: SERTRALINE HYDROCHLORIDE
     Dosage: UNK
  2. NICOTINE. [Concomitant]
     Active Substance: NICOTINE
     Route: 062
  3. CELECOXIB. [Concomitant]
     Active Substance: CELECOXIB
  4. ASPIRIN [ACETYLSALICYLIC ACID] [Concomitant]
     Active Substance: ASPIRIN
  5. ZOLOFT [Suspect]
     Active Substance: SERTRALINE HYDROCHLORIDE
     Dosage: UNK
  6. METFORMIN [Concomitant]
     Active Substance: METFORMIN HYDROCHLORIDE
  7. LISINOPRIL. [Concomitant]
     Active Substance: LISINOPRIL
  8. SIMVASTATIN. [Concomitant]
     Active Substance: SIMVASTATIN
  9. HUMULIN NOS [Concomitant]
     Active Substance: INSULIN HUMAN
     Dosage: 70/30
  10. BRILINTA [Concomitant]
     Active Substance: TICAGRELOR
  11. CETIRIZINE [Concomitant]
     Active Substance: CETIRIZINE HYDROCHLORIDE
  12. TRULICITY [Concomitant]
     Active Substance: DULAGLUTIDE
  13. HYDROXYZINE HYDROCHLORIDE. [Concomitant]
     Active Substance: HYDROXYZINE HYDROCHLORIDE
  14. METOPROLOL. [Concomitant]
     Active Substance: METOPROLOL

REACTIONS (2)
  - Vomiting [Unknown]
  - Drug hypersensitivity [Unknown]
